FAERS Safety Report 5264564-0 (Version None)
Quarter: 2007Q1

REPORT INFORMATION
  Report Type: 
  Country: None (occurrence: None)
  Receive Date: 20061213
  Receipt Date: 20040625
  Transmission Date: 20070707
  Serious: Yes (Other)
  Sender: FDA-Public Use
  Company Number: 2004UW13223

PATIENT
  Age: 48 Year
  Sex: Female
  Weight: 104.3273 kg

DRUGS (14)
  1. IRESSA [Suspect]
     Indication: METASTASES TO CENTRAL NERVOUS SYSTEM
     Dosage: 250 MG PO
     Route: 048
     Dates: start: 20040618
  2. IRESSA [Suspect]
     Indication: NON-SMALL CELL LUNG CANCER
     Dosage: 250 MG PO
     Route: 048
     Dates: start: 20040618
  3. PREDNISONE [Concomitant]
  4. ATENOLOL [Concomitant]
  5. ZOLOFT [Concomitant]
  6. NEXIUM [Concomitant]
  7. MAXZIDE [Concomitant]
  8. CELEBREX [Concomitant]
  9. AMBIEN [Concomitant]
  10. MORPHINE [Concomitant]
  11. ZITHROMAX [Concomitant]
  12. LEVAQUIN [Concomitant]
  13. CLINDAMYDIN [Concomitant]
  14. FOSAMAX [Concomitant]

REACTIONS (4)
  - ABDOMINAL PAIN [None]
  - DIARRHOEA [None]
  - DIZZINESS [None]
  - VOMITING [None]
